FAERS Safety Report 18016277 (Version 5)
Quarter: 2020Q4

REPORT INFORMATION
  Report Type: Report from Study
  Country: None (occurrence: US)
  Receive Date: 20200714
  Receipt Date: 20201215
  Transmission Date: 20210113
  Serious: Yes (Hospitalization, Other)
  Sender: FDA-Public Use
  Company Number: US-ABBVIE-20K-163-3477753-00

PATIENT
  Sex: Male
  Weight: 81.72 kg

DRUGS (3)
  1. AZATHIOPRINE. [Concomitant]
     Active Substance: AZATHIOPRINE
     Indication: PRODUCT USED FOR UNKNOWN INDICATION
  2. HUMIRA [Suspect]
     Active Substance: ADALIMUMAB
     Indication: COLITIS ULCERATIVE
     Dosage: CITRATE FREE
     Route: 058
     Dates: start: 202001, end: 202005
  3. HUMIRA [Suspect]
     Active Substance: ADALIMUMAB
     Indication: PROCTITIS
     Dosage: CITRATE FREE
     Route: 058
     Dates: start: 202006

REACTIONS (8)
  - Colonic fistula [Recovered/Resolved]
  - Large intestine perforation [Recovering/Resolving]
  - Muscle spasms [Recovered/Resolved]
  - Off label use [Recovered/Resolved]
  - Colitis ulcerative [Unknown]
  - Arthralgia [Recovered/Resolved]
  - Pain [Unknown]
  - Pain in extremity [Recovered/Resolved]

NARRATIVE: CASE EVENT DATE: 2020
